FAERS Safety Report 20404679 (Version 1)
Quarter: 2022Q1

REPORT INFORMATION
  Report Type: Spontaneous
  Country: US (occurrence: None)
  Receive Date: 20220129
  Receipt Date: 20220129
  Transmission Date: 20220424
  Serious: Yes (Other)
  Sender: FDA-Public Use
  Company Number: None

PATIENT
  Age: 49 Year
  Sex: Female
  Weight: 102 kg

DRUGS (2)
  1. MOLNUPIRAVIR [Suspect]
     Active Substance: MOLNUPIRAVIR
     Indication: COVID-19
     Dates: start: 20220124, end: 20220126
  2. mucinex guaifenisin/DM [Concomitant]
     Dates: start: 20220124, end: 20220126

REACTIONS (8)
  - Chest discomfort [None]
  - Swelling [None]
  - Feeling abnormal [None]
  - Pain [None]
  - Burning sensation [None]
  - Pruritus [None]
  - Insomnia [None]
  - Erythema [None]

NARRATIVE: CASE EVENT DATE: 20220125
